FAERS Safety Report 6240368-7 (Version None)
Quarter: 2009Q2

REPORT INFORMATION
  Report Type: 
  Country: None (occurrence: None)
  Receive Date: 20090623
  Receipt Date: 20080827
  Transmission Date: 20091009
  Serious: No
  Sender: FDA-Public Use
  Company Number: US-ASTRAZENECA-2008UW17669

PATIENT
  Age: 69 Year
  Sex: Male
  Weight: 117.9 kg

DRUGS (9)
  1. PULMICORT FLEXHALER [Suspect]
     Indication: ASTHMA
     Route: 055
  2. ACCUPRIL [Concomitant]
  3. TOPROL-XL [Concomitant]
  4. ZOCOR [Concomitant]
  5. FOLIC ACID [Concomitant]
  6. ASPIRIN [Concomitant]
  7. RHINOCORT [Concomitant]
  8. MAXHALER [Concomitant]
  9. FORADIL [Concomitant]

REACTIONS (2)
  - ORAL CANDIDIASIS [None]
  - SWOLLEN TONGUE [None]
